FAERS Safety Report 10511938 (Version 9)
Quarter: 2016Q3

REPORT INFORMATION
  Report Type: Report from Study
  Country: BR (occurrence: BR)
  Receive Date: 20141010
  Receipt Date: 20160805
  Transmission Date: 20161109
  Serious: Yes (Death, Hospitalization, Other)
  Sender: FDA-Public Use
  Company Number: PHHY2014BR130052

PATIENT
  Age: 39 Year
  Sex: Female
  Weight: 66 kg

DRUGS (4)
  1. AFINITOR [Suspect]
     Active Substance: EVEROLIMUS
     Indication: NEUROENDOCRINE CARCINOMA METASTATIC
     Dosage: 1 DF OF 10 MG, QD
     Route: 048
     Dates: start: 201404
  2. PANTOPRAZOLE [Concomitant]
     Active Substance: PANTOPRAZOLE SODIUM
     Indication: PRODUCT USED FOR UNKNOWN INDICATION
     Dosage: 1 DF OF 40 MG, QD
     Route: 048
     Dates: start: 201510
  3. SANDOSTATIN LAR DEPOT [Suspect]
     Active Substance: OCTREOTIDE ACETATE
     Indication: NEUROENDOCRINE TUMOUR
     Dosage: 1 DF OF 30 MG, QMO (1 INJECTION EVERY 30 DAYS)
     Route: 030
     Dates: start: 20130913
  4. CALCIO [Suspect]
     Active Substance: CALCIUM
     Indication: SUPPLEMENTATION THERAPY
     Dosage: UNK, QMO
     Route: 042

REACTIONS (23)
  - Throat irritation [Recovering/Resolving]
  - Aphthous ulcer [Recovering/Resolving]
  - Pleural effusion [Recovering/Resolving]
  - Malignant neoplasm progression [Fatal]
  - Diarrhoea [Recovering/Resolving]
  - Weight decreased [Not Recovered/Not Resolved]
  - Injection site swelling [Recovering/Resolving]
  - Anaemia [Recovering/Resolving]
  - Haemorrhage [Fatal]
  - Oral discomfort [Recovering/Resolving]
  - Malaise [Not Recovered/Not Resolved]
  - Hypersensitivity [Recovering/Resolving]
  - Erythema [Recovering/Resolving]
  - Carcinoid heart disease [Recovered/Resolved]
  - Mass [Recovering/Resolving]
  - Diabetes mellitus [Recovering/Resolving]
  - Torticollis [Not Recovered/Not Resolved]
  - Metastasis [Fatal]
  - Cough [Recovering/Resolving]
  - Injection site pain [Recovering/Resolving]
  - Renal failure [Not Recovered/Not Resolved]
  - Muscle spasms [Recovering/Resolving]
  - Bone pain [Recovering/Resolving]

NARRATIVE: CASE EVENT DATE: 20130913
